FAERS Safety Report 18227288 (Version 1)
Quarter: 2020Q3

REPORT INFORMATION
  Report Type: Spontaneous
  Country: FR (occurrence: FR)
  Receive Date: 20200903
  Receipt Date: 20200903
  Transmission Date: 20201103
  Serious: Yes (Death)
  Sender: FDA-Public Use
  Company Number: FR-TEVA-2020-FR-1821807

PATIENT
  Age: 24 Year
  Sex: Male

DRUGS (6)
  1. OXAZEPAM. [Suspect]
     Active Substance: OXAZEPAM
     Route: 065
  2. CYAMEMAZINE [Suspect]
     Active Substance: CYAMEMAZINE
     Route: 065
  3. QUETIAPINE. [Suspect]
     Active Substance: QUETIAPINE
     Route: 065
  4. ZOPICLONE [Suspect]
     Active Substance: ZOPICLONE
     Route: 065
  5. LOXAPINE BASE [Suspect]
     Active Substance: LOXAPINE
     Route: 065
  6. METHADONE [Suspect]
     Active Substance: METHADONE HYDROCHLORIDE
     Route: 065

REACTIONS (1)
  - Death [Fatal]
